FAERS Safety Report 18932508 (Version 10)
Quarter: 2022Q1

REPORT INFORMATION
  Report Type: Spontaneous
  Country: US (occurrence: US)
  Receive Date: 20210223
  Receipt Date: 20220121
  Transmission Date: 20220423
  Serious: Yes (Hospitalization)
  Sender: FDA-Public Use
  Company Number: US-009507513-2102USA006794

PATIENT
  Age: 60 Year
  Sex: Female
  Weight: 73.5 kg

DRUGS (20)
  1. KEYTRUDA [Suspect]
     Active Substance: PEMBROLIZUMAB
     Indication: Neoplasm malignant
     Dosage: 200 MG, DAY 1 AND EVERY 21 DAYS
     Route: 042
     Dates: start: 20201221, end: 20210112
  2. FUROSEMIDE [Concomitant]
     Active Substance: FUROSEMIDE
     Indication: Acute left ventricular failure
     Dosage: 20 MG, QD (ONCE DAILY)
     Route: 048
     Dates: start: 20190930
  3. CHOLECALCIFEROL [Concomitant]
     Active Substance: CHOLECALCIFEROL
     Indication: Supplementation therapy
     Dosage: 2000 IU, QOD (ALSO REPORTED ONCE DAILY)
     Route: 048
     Dates: start: 20190115
  4. TYLENOL [Concomitant]
     Active Substance: ACETAMINOPHEN
     Indication: Prophylaxis
     Dosage: 650 MG, AS REQUIRED
     Route: 048
     Dates: start: 20180721
  5. TYLENOL [Concomitant]
     Active Substance: ACETAMINOPHEN
     Indication: Cancer pain
  6. ENALAPRIL [Concomitant]
     Active Substance: ENALAPRIL
     Indication: Hypertension
     Dosage: 5 MG, QD (ONCE DAILY)
     Route: 048
     Dates: start: 20191001
  7. GLIPIZIDE [Concomitant]
     Active Substance: GLIPIZIDE
     Indication: Diabetes mellitus
     Dosage: 5 MG, BID
     Route: 048
     Dates: start: 20201216
  8. ATROPINE\DIPHENOXYLATE [Concomitant]
     Active Substance: ATROPINE\DIPHENOXYLATE
     Indication: Diarrhoea
     Dosage: 1 DOSAGE FORM,QID
     Route: 048
     Dates: start: 20210121
  9. SYNTHROID [Concomitant]
     Active Substance: LEVOTHYROXINE SODIUM
     Indication: Hypothyroidism
     Dosage: 100 MCG,QD (ONCE DAILY)
     Route: 048
     Dates: start: 20120901
  10. PANTOPRAZOLE [Concomitant]
     Active Substance: PANTOPRAZOLE
     Indication: Gastrooesophageal reflux disease
     Dosage: 40 MG,QD (ONCE DAILY)
     Route: 048
     Dates: start: 20190115
  11. POTASSIUM CHLORIDE [Concomitant]
     Active Substance: POTASSIUM CHLORIDE
     Indication: Hypokalaemia
     Dosage: 20 MILLIEQUIVALENTS,BID
     Route: 048
     Dates: start: 20201023
  12. POTASSIUM CHLORIDE [Concomitant]
     Active Substance: POTASSIUM CHLORIDE
     Indication: Hypokalaemia
     Dosage: 40 MILLIEQUIVALENTS,ONCE
     Route: 048
     Dates: start: 20210122, end: 20210122
  13. POTASSIUM CHLORIDE [Concomitant]
     Active Substance: POTASSIUM CHLORIDE
     Indication: Blood creatinine increased
     Dosage: 40 MEQ/L,ONCE
     Route: 051
     Dates: start: 20210205, end: 20210205
  14. SULFAMETHOXAZOLE\TRIMETHOPRIM [Concomitant]
     Active Substance: SULFAMETHOXAZOLE\TRIMETHOPRIM
     Indication: Urinary tract infection
     Dosage: 160 MG, BID
     Route: 048
     Dates: start: 20210128
  15. MAGNESIUM SULFATE [Concomitant]
     Active Substance: MAGNESIUM SULFATE
     Indication: Hypomagnesaemia
     Dosage: 4 GM,ONCE
     Route: 051
     Dates: start: 20210122, end: 20210122
  16. MAGNESIUM SULFATE [Concomitant]
     Active Substance: MAGNESIUM SULFATE
     Dosage: 4 GM,ONCE
     Route: 051
     Dates: start: 20210128, end: 20210128
  17. SODIUM CHLORIDE [Concomitant]
     Active Substance: SODIUM CHLORIDE
     Indication: Blood creatinine increased
     Dosage: 1000 ML,ONCE
     Route: 051
     Dates: start: 20210205, end: 20210205
  18. PROCHLORPERAZINE [Concomitant]
     Active Substance: PROCHLORPERAZINE
     Indication: Nausea
     Dosage: 10 MG,Q6H, PRN
     Route: 048
     Dates: start: 20181005, end: 20210112
  19. LORAZEPAM [Concomitant]
     Active Substance: LORAZEPAM
     Indication: Prophylaxis
     Dosage: 0.5 MG, ONCE
     Route: 048
     Dates: start: 20201106, end: 20201112
  20. LORAZEPAM [Concomitant]
     Active Substance: LORAZEPAM
     Dosage: 0.5 MG, ONCE
     Route: 051
     Dates: start: 20201106, end: 20201112

REACTIONS (4)
  - Colitis [Recovered/Resolved]
  - Blood creatinine increased [Unknown]
  - Diarrhoea [Unknown]
  - Diarrhoea [Unknown]

NARRATIVE: CASE EVENT DATE: 20210119
